FAERS Safety Report 9116373 (Version 1)
Quarter: 2013Q1

REPORT INFORMATION
  Report Type: Report from Study
  Country: US (occurrence: US)
  Receive Date: 20130225
  Receipt Date: 20130225
  Transmission Date: 20140127
  Serious: Yes (Death, Hospitalization)
  Sender: FDA-Public Use
  Company Number: US-ACTELION-A-NJ2013-79524

PATIENT
  Age: 50 Year
  Sex: Female

DRUGS (1)
  1. VELETRI [Suspect]
     Indication: PULMONARY ARTERIAL HYPERTENSION
     Dosage: 8 NG/KG, PER MIN
     Route: 048
     Dates: start: 20121127

REACTIONS (4)
  - Death [Fatal]
  - Dyspnoea [Unknown]
  - Device leakage [Unknown]
  - Catheter site haemorrhage [Unknown]
